FAERS Safety Report 14434217 (Version 2)
Quarter: 2018Q2

REPORT INFORMATION
  Report Type: Report from Study
  Country: US (occurrence: AR)
  Receive Date: 20180124
  Receipt Date: 20180409
  Transmission Date: 20180711
  Serious: Yes (Life-Threatening, Other)
  Sender: FDA-Public Use
  Company Number: US-SUNOVION-2018SUN000193

PATIENT
  Sex: Male

DRUGS (2)
  1. GLYCOPYRROLATE. [Suspect]
     Active Substance: GLYCOPYRROLATE
     Indication: EMPHYSEMA
     Dosage: 1 DF, QD
     Route: 065
  2. INDACATEROL AND GLYCOPYRROLATE [Suspect]
     Active Substance: GLYCOPYRROLATE\INDACATEROL MALEATE
     Indication: EMPHYSEMA
     Dosage: 1 DF, QD
     Route: 065

REACTIONS (8)
  - Drug ineffective [Unknown]
  - Dyspnoea [Unknown]
  - Throat tightness [Unknown]
  - Secretion discharge [Unknown]
  - Emphysema [Unknown]
  - Cough [Unknown]
  - Condition aggravated [Unknown]
  - Feeling abnormal [Unknown]
